FAERS Safety Report 7328420-6 (Version None)
Quarter: 2011Q1

REPORT INFORMATION
  Report Type: 
  Country: None (occurrence: None)
  Receive Date: 20110224
  Receipt Date: 20110224
  Transmission Date: 20110831
  Serious: Yes (Hospitalization)
  Sender: FDA-Public Use
  Company Number: None

PATIENT
  Age: 65 Year
  Sex: Male
  Weight: 92 kg

DRUGS (2)
  1. BUPROPION [Suspect]
     Dosage: 150 MG TID PO
     Route: 048
     Dates: start: 19941228, end: 20110220
  2. TRAMADOL [Suspect]
     Dosage: 50 MG QID PO
     Route: 048
     Dates: start: 20091215, end: 20110220

REACTIONS (2)
  - CONFUSIONAL STATE [None]
  - GRAND MAL CONVULSION [None]
